FAERS Safety Report 4392007-8 (Version None)
Quarter: 2004Q3

REPORT INFORMATION
  Report Type: 
  Country: None (occurrence: None)
  Receive Date: 20040701
  Receipt Date: 20040608
  Transmission Date: 20050211
  Serious: Yes (Hospitalization, Other)
  Sender: FDA-Public Use
  Company Number: USA040670108

PATIENT
  Age: 69 Year
  Sex: Male

DRUGS (1)
  1. ZYPREXA [Suspect]
     Dosage: 2.5 MG/2 DAY

REACTIONS (2)
  - PANCREATITIS ACUTE [None]
  - RENAL FAILURE [None]
